APPROVED DRUG PRODUCT: VARDENAFIL HYDROCHLORIDE
Active Ingredient: VARDENAFIL HYDROCHLORIDE
Strength: EQ 10MG BASE
Dosage Form/Route: TABLET;ORAL
Application: A210738 | Product #002
Applicant: JEROME STEVENS PHARMACEUTICALS INC
Approved: Oct 31, 2018 | RLD: No | RS: No | Type: DISCN